FAERS Safety Report 22388929 (Version 1)
Quarter: 2023Q2

REPORT INFORMATION
  Report Type: Spontaneous
  Country: IN (occurrence: IN)
  Receive Date: 20230531
  Receipt Date: 20230531
  Transmission Date: 20230721
  Serious: Yes (Other)
  Sender: FDA-Public Use
  Company Number: IN-PFIZER INC-202200805190

PATIENT
  Age: 73 Year
  Sex: Female
  Weight: 78.5 kg

DRUGS (4)
  1. PALBOCICLIB [Suspect]
     Active Substance: PALBOCICLIB
     Indication: Breast cancer metastatic
     Dosage: 125 MG, 1X/DAY
     Route: 048
     Dates: start: 20220221
  2. FULVENAT [Concomitant]
     Dosage: 500 MG
     Route: 030
  3. FULVENAT [Concomitant]
     Dosage: UNK
     Dates: end: 20230204
  4. XGEVA [Concomitant]
     Active Substance: DENOSUMAB
     Dosage: 120 MG

REACTIONS (8)
  - Ascites [Unknown]
  - Peritoneal disorder [Unknown]
  - Neoplasm progression [Unknown]
  - Tooth disorder [Unknown]
  - Blood pressure increased [Recovering/Resolving]
  - Respiratory rate increased [Unknown]
  - Transaminases increased [Unknown]
  - Heart rate increased [Unknown]
